FAERS Safety Report 14858905 (Version 2)
Quarter: 2023Q1

REPORT INFORMATION
  Report Type: Spontaneous
  Country: US (occurrence: US)
  Receive Date: 20180508
  Receipt Date: 20230106
  Transmission Date: 20230418
  Serious: Yes (Disabling)
  Sender: FDA-Public Use
  Company Number: US-TEVA-768820USA

PATIENT
  Sex: Female

DRUGS (1)
  1. DOCETAXEL [Suspect]
     Active Substance: DOCETAXEL
     Indication: Breast cancer female
     Dosage: NUMBER OF CYCLES 04, EVERY 3 WEEKS
     Route: 065
     Dates: start: 20140123, end: 20140410

REACTIONS (2)
  - Alopecia [Unknown]
  - Adverse event [Unknown]
